FAERS Safety Report 8475116-3 (Version None)
Quarter: 2012Q2

REPORT INFORMATION
  Report Type: 
  Country: None (occurrence: None)
  Receive Date: 20120628
  Receipt Date: 20120619
  Transmission Date: 20120825
  Serious: Yes (Other)
  Sender: FDA-Public Use
  Company Number: KZ-JNJFOC-20120610562

PATIENT
  Sex: Male

DRUGS (4)
  1. REMICADE [Suspect]
     Route: 042
     Dates: start: 20120519, end: 20120519
  2. SOLU-MEDROL [Concomitant]
     Indication: PREMEDICATION
     Route: 042
  3. REMICADE [Suspect]
     Indication: JUVENILE ARTHRITIS
     Route: 042
     Dates: start: 20120405
  4. REMICADE [Suspect]
     Route: 042
     Dates: start: 20120419

REACTIONS (4)
  - PALLOR [None]
  - INFUSION RELATED REACTION [None]
  - CYANOSIS [None]
  - DYSPNOEA [None]
